FAERS Safety Report 18452068 (Version 1)
Quarter: 2020Q4

REPORT INFORMATION
  Report Type: Report from Study
  Country: None (occurrence: AU)
  Receive Date: 20201102
  Receipt Date: 20201102
  Transmission Date: 20210114
  Serious: Yes (Other)
  Sender: FDA-Public Use
  Company Number: AU-COEPTIS PHARMACEUTICALS, INC.-COE-2020-000060

PATIENT

DRUGS (1)
  1. AMLODIPINE [Suspect]
     Active Substance: AMLODIPINE BESYLATE
     Dosage: MAXIMUM DAILY DOSE: MORE THAN 10 MG
     Route: 048

REACTIONS (3)
  - Haemodynamic instability [Unknown]
  - Drug interaction [Unknown]
  - Toxicity to various agents [Unknown]
